FAERS Safety Report 14161230 (Version 6)
Quarter: 2018Q1

REPORT INFORMATION
  Report Type: Report from Study
  Country: US (occurrence: US)
  Receive Date: 20171106
  Receipt Date: 20180130
  Transmission Date: 20180508
  Serious: Yes (Hospitalization)
  Sender: FDA-Public Use
  Company Number: US-GLAXOSMITHKLINE-US2017169099

PATIENT
  Age: 51 Year
  Sex: Female

DRUGS (9)
  1. VELETRI [Suspect]
     Active Substance: EPOPROSTENOL
     Indication: PULMONARY ARTERIAL HYPERTENSION
     Dosage: 1.5 MG, UNK
     Route: 065
  2. SILDENAFIL. [Concomitant]
     Active Substance: SILDENAFIL
     Dosage: 20 MG, TID
  3. AMBRISENTAN [Suspect]
     Active Substance: AMBRISENTAN
     Indication: PULMONARY ARTERIAL HYPERTENSION
     Dosage: 5 MG, QD
     Route: 065
     Dates: start: 20071011
  4. SILDENAFIL. [Concomitant]
     Active Substance: SILDENAFIL
     Dosage: 80 MG, TID
  5. SILDENAFIL. [Concomitant]
     Active Substance: SILDENAFIL
     Dosage: 20 MG, UNK
  6. SILDENAFIL. [Concomitant]
     Active Substance: SILDENAFIL
     Dosage: 20 MG, TID
  7. SILDENAFIL. [Concomitant]
     Active Substance: SILDENAFIL
     Dosage: 80 MG, TID
  8. VELETRI [Suspect]
     Active Substance: EPOPROSTENOL
     Dosage: 70 NG, UNK
     Route: 065
  9. SILDENAFIL. [Concomitant]
     Active Substance: SILDENAFIL
     Dosage: 20 MG, TID

REACTIONS (10)
  - Intra-abdominal fluid collection [Not Recovered/Not Resolved]
  - Fluid retention [Unknown]
  - Fluid retention [Not Recovered/Not Resolved]
  - Abdominal distension [Not Recovered/Not Resolved]
  - Abdominal distension [Unknown]
  - Dyspnoea [Not Recovered/Not Resolved]
  - Weight increased [Unknown]
  - Dyspnoea [Unknown]
  - Drug dose omission [Unknown]
  - Paracentesis [Unknown]

NARRATIVE: CASE EVENT DATE: 20171030
